FAERS Safety Report 8290997-4 (Version None)
Quarter: 2012Q2

REPORT INFORMATION
  Report Type: 
  Country: None (occurrence: None)
  Receive Date: 20120417
  Receipt Date: 20110610
  Transmission Date: 20120825
  Serious: No
  Sender: FDA-Public Use
  Company Number: US-ASTRAZENECA-2011SE35958

PATIENT
  Age: 15739 Day
  Sex: Female

DRUGS (33)
  1. IBUPROFEN [Concomitant]
     Indication: PLANTAR FASCIITIS
  2. FLEXERIL [Concomitant]
     Indication: MUSCLE SPASMS
  3. CELEXA [Concomitant]
  4. DARVOCET-N 100 [Concomitant]
  5. NAPROXEN [Concomitant]
  6. ULTRAM [Concomitant]
  7. AMITRIPTYLINE HCL [Concomitant]
  8. SONATA [Concomitant]
  9. MULTI-VITAMINS [Concomitant]
  10. EFFEXOR XR [Concomitant]
  11. DESIPRAMINE HYDROCHLORIDE [Concomitant]
  12. LORTAB [Concomitant]
  13. ZOLOFT [Concomitant]
  14. ABILIFY [Concomitant]
  15. PROPRANOLOL [Concomitant]
     Indication: ANXIETY
  16. TRAZODONE HCL [Concomitant]
  17. DICLOFENAC SODIUM [Concomitant]
  18. OXYCODONE/ACETAMINOPHEN [Concomitant]
  19. TYLENOL (CAPLET) [Concomitant]
  20. MECLIZINE [Concomitant]
  21. PAXIL [Concomitant]
  22. IMITREX [Concomitant]
  23. PROTONIX [Concomitant]
  24. DEPO-PROVERA [Concomitant]
  25. NEXIUM [Suspect]
     Route: 048
  26. XANAX [Concomitant]
  27. SEROQUEL [Concomitant]
  28. HYDROCORTISONE CREAM [Concomitant]
  29. DEPAKOTE [Concomitant]
  30. NEURONTIN [Concomitant]
  31. WELLBUTRIN [Concomitant]
  32. TRILEPTAL [Concomitant]
  33. CHLORTHALIDONE [Concomitant]

REACTIONS (11)
  - INTERVERTEBRAL DISC PROTRUSION [None]
  - LIMB INJURY [None]
  - MIGRAINE WITH AURA [None]
  - DEPRESSION [None]
  - MOTION SICKNESS [None]
  - TARSAL TUNNEL SYNDROME [None]
  - GASTROOESOPHAGEAL REFLUX DISEASE [None]
  - PLANTAR FASCIITIS [None]
  - BIPOLAR DISORDER [None]
  - POST-TRAUMATIC STRESS DISORDER [None]
  - PAIN IN EXTREMITY [None]
